FAERS Safety Report 23563625 (Version 7)
Quarter: 2024Q4

REPORT INFORMATION
  Report Type: Spontaneous
  Country: FR (occurrence: FR)
  Receive Date: 20240226
  Receipt Date: 20241115
  Transmission Date: 20250114
  Serious: Yes (Hospitalization, Other)
  Sender: SANDOZ
  Company Number: FR-AstraZeneca-2023A276404

PATIENT
  Age: 83 Year
  Sex: Male
  Weight: 110 kg

DRUGS (58)
  1. ALLOPURINOL [Suspect]
     Active Substance: ALLOPURINOL
     Indication: Infection
     Dosage: 300 MG
     Route: 065
  2. APIXABAN [Suspect]
     Active Substance: APIXABAN
     Dosage: 2.5 MILLIGRAM, QD
     Route: 048
     Dates: start: 20231023
  3. APIXABAN [Suspect]
     Active Substance: APIXABAN
     Dosage: 5 MG, QD
     Route: 048
     Dates: start: 20231010
  4. APIXABAN [Suspect]
     Active Substance: APIXABAN
     Indication: Product used for unknown indication
     Dosage: 5 MILLIGRAM, QD
     Route: 048
     Dates: start: 20231001
  5. ARSENIC TRIOXIDE [Suspect]
     Active Substance: ARSENIC TRIOXIDE
     Dosage: 17 MG, 1X/DAY
     Route: 065
  6. ARSENIC TRIOXIDE [Suspect]
     Active Substance: ARSENIC TRIOXIDE
     Dosage: 17 MG, QD
     Route: 065
     Dates: start: 20230915
  7. ARSENIC TRIOXIDE [Suspect]
     Active Substance: ARSENIC TRIOXIDE
     Dosage: 25 MG, 1X/DAY
     Route: 065
     Dates: start: 20231023
  8. ARSENIC TRIOXIDE [Suspect]
     Active Substance: ARSENIC TRIOXIDE
     Dosage: 25 MG, 1X/DAY
     Route: 065
     Dates: start: 20231113
  9. ARSENIC TRIOXIDE [Suspect]
     Active Substance: ARSENIC TRIOXIDE
     Indication: Acute promyelocytic leukaemia
     Dosage: 25 MG, QD
     Route: 065
     Dates: start: 20231113
  10. ARSENIC TRIOXIDE [Suspect]
     Active Substance: ARSENIC TRIOXIDE
     Indication: Acute myeloid leukaemia
     Dosage: 30 MG, QD
     Route: 042
     Dates: start: 20231106, end: 20231106
  11. ARSENIC TRIOXIDE [Suspect]
     Active Substance: ARSENIC TRIOXIDE
     Dosage: 30 MG, QD
     Route: 042
     Dates: start: 20231106, end: 20231106
  12. ARSENIC TRIOXIDE [Suspect]
     Active Substance: ARSENIC TRIOXIDE
     Dosage: 50 MG, QD
     Route: 065
     Dates: start: 20231023
  13. ARSENIC TRIOXIDE [Suspect]
     Active Substance: ARSENIC TRIOXIDE
     Dosage: 50 MG, QD
     Route: 065
     Dates: start: 20231106, end: 20231106
  14. BISOPROLOL FUMARATE [Suspect]
     Active Substance: BISOPROLOL FUMARATE
     Dosage: 5 MG, QD
     Route: 048
  15. BISOPROLOL FUMARATE [Suspect]
     Active Substance: BISOPROLOL FUMARATE
     Indication: Product used for unknown indication
     Dosage: 1.25 MG, QD
     Route: 048
  16. BISOPROLOL FUMARATE [Suspect]
     Active Substance: BISOPROLOL FUMARATE
     Dosage: 5 MG, QD
     Route: 048
     Dates: start: 20231023
  17. PENICILLIN G BENZATHINE [Suspect]
     Active Substance: PENICILLIN G BENZATHINE
     Indication: Oedema
     Dosage: UNK
     Route: 065
  18. BENZOYL PEROXIDE\CLINDAMYCIN [Suspect]
     Active Substance: BENZOYL PEROXIDE\CLINDAMYCIN
     Indication: Product used for unknown indication
     Dosage: UNK
     Route: 065
     Dates: start: 20231106
  19. CANDESARTAN [Suspect]
     Active Substance: CANDESARTAN
     Indication: Hypertension
     Dosage: 16 MG, QD
     Route: 048
     Dates: start: 20231023
  20. CHOLECALCIFEROL [Suspect]
     Active Substance: CHOLECALCIFEROL
     Indication: Infection
     Dosage: UNK
     Route: 065
     Dates: start: 20231023
  21. CLINDAMYCIN HYDROCHLORIDE [Suspect]
     Active Substance: CLINDAMYCIN HYDROCHLORIDE
     Indication: Product used for unknown indication
     Dosage: UNK
     Route: 065
  22. ELIQUIS [Suspect]
     Active Substance: APIXABAN
     Dosage: 2.5 MG, 1X/DAY
     Route: 048
     Dates: start: 20231023
  23. ELIQUIS [Suspect]
     Active Substance: APIXABAN
     Dosage: 5 MG, 1X/DAY
     Route: 048
     Dates: start: 20231001
  24. ELIQUIS [Suspect]
     Active Substance: APIXABAN
     Indication: Atrial fibrillation
     Dosage: 5 MG, QD
     Route: 048
     Dates: start: 20231010
  25. EZETIMIBE\SIMVASTATIN [Suspect]
     Active Substance: EZETIMIBE\SIMVASTATIN
     Indication: Product used for unknown indication
     Dosage: UNK UNK, QD (10/40 MILLIGRAM, QD)
     Route: 065
  26. EZETIMIBE\SIMVASTATIN [Suspect]
     Active Substance: EZETIMIBE\SIMVASTATIN
     Dosage: UNK UNK, QD (10/40 MILLIGRAM, QD)
     Route: 065
     Dates: start: 20231023
  27. FUROSEMIDE [Suspect]
     Active Substance: FUROSEMIDE
     Indication: Acute promyelocytic leukaemia
     Dosage: 120 MG, QD
     Route: 048
     Dates: start: 20231002
  28. FUROSEMIDE [Suspect]
     Active Substance: FUROSEMIDE
     Dosage: 120 MG, QD
     Route: 065
  29. FUROSEMIDE [Suspect]
     Active Substance: FUROSEMIDE
     Dosage: UNK
     Route: 065
     Dates: start: 20230919
  30. FUROSEMIDE [Suspect]
     Active Substance: FUROSEMIDE
     Dosage: UNK
     Route: 065
  31. FUROSEMIDE [Suspect]
     Active Substance: FUROSEMIDE
     Dosage: UNK
     Route: 065
  32. FUROSEMIDE [Suspect]
     Active Substance: FUROSEMIDE
     Dosage: UNK
     Route: 065
  33. HERBALS\PLANTAGO OVATA SEED [Suspect]
     Active Substance: HERBALS\PLANTAGO OVATA SEED
     Indication: Product used for unknown indication
     Dosage: UNK
     Route: 065
  34. LANSOPRAZOLE [Suspect]
     Active Substance: LANSOPRAZOLE
     Indication: Acute promyelocytic leukaemia
     Dosage: 15 MG, QD
     Route: 048
     Dates: start: 20231023
  35. FUROSEMIDE [Suspect]
     Active Substance: FUROSEMIDE
     Dosage: 120 MG, 1X/DAY
     Route: 048
     Dates: start: 20231002
  36. FUROSEMIDE [Suspect]
     Active Substance: FUROSEMIDE
     Indication: Oedema peripheral
     Dosage: UNK
     Route: 048
     Dates: start: 20230919
  37. LERCANIDIPINE [Suspect]
     Active Substance: LERCANIDIPINE
     Indication: Product used for unknown indication
     Dosage: 20 MG
     Route: 065
  38. LORAZEPAM [Suspect]
     Active Substance: LORAZEPAM
     Indication: Product used for unknown indication
     Dosage: 20 MG
     Route: 065
  39. LORAZEPAM [Suspect]
     Active Substance: LORAZEPAM
     Dosage: 20 MG
     Route: 065
  40. ASPIRIN DL-LYSINE [Suspect]
     Active Substance: ASPIRIN DL-LYSINE
     Indication: Acute myeloid leukaemia
     Dosage: 100 MG
     Route: 065
  41. PREDNISONE [Suspect]
     Active Substance: PREDNISONE
     Indication: Differentiation syndrome
     Dosage: UNK
     Route: 065
  42. TRETINOIN [Suspect]
     Active Substance: TRETINOIN
     Indication: Acute promyelocytic leukaemia
     Dosage: 10 MG, QD
     Route: 048
     Dates: start: 20231106
  43. URAPIDIL HYDROCHLORIDE [Suspect]
     Active Substance: URAPIDIL HYDROCHLORIDE
     Indication: Product used for unknown indication
     Dosage: 90 MG, QD
     Route: 048
     Dates: start: 20231023
  44. URAPIDIL HYDROCHLORIDE [Suspect]
     Active Substance: URAPIDIL HYDROCHLORIDE
     Dosage: 90 MG, QD
     Route: 065
  45. VALACYCLOVIR HYDROCHLORIDE [Suspect]
     Active Substance: VALACYCLOVIR HYDROCHLORIDE
     Dosage: 1 G, QD
     Route: 048
     Dates: start: 20230915
  46. VALACYCLOVIR HYDROCHLORIDE [Suspect]
     Active Substance: VALACYCLOVIR HYDROCHLORIDE
     Indication: Product used for unknown indication
     Dosage: 1 G, QD
     Route: 065
  47. ALVERINE CITRATE [Concomitant]
     Active Substance: ALVERINE CITRATE
     Indication: Oedema peripheral
     Dosage: UNK
     Route: 065
  48. POTASSIUM CHLORIDE [Concomitant]
     Active Substance: POTASSIUM CHLORIDE
     Indication: Hypertension
     Dosage: UNK
     Route: 065
     Dates: start: 20231023
  49. POTASSIUM CHLORIDE [Concomitant]
     Active Substance: POTASSIUM CHLORIDE
     Dosage: UNK
     Route: 065
  50. POTASSIUM CHLORIDE [Concomitant]
     Active Substance: POTASSIUM CHLORIDE
     Dosage: UNK
     Route: 065
  51. METEOSPASMIL [Concomitant]
     Indication: Product used for unknown indication
     Dosage: 10/40 MILLIGRAM, QD
     Route: 065
  52. POTASSIUM CHLORIDE [Concomitant]
     Active Substance: POTASSIUM CHLORIDE
     Indication: Product used for unknown indication
     Dosage: UNK
     Route: 065
  53. SIMETHICONE (DIMETHICONE) [Concomitant]
     Active Substance: DIMETHICONE
     Indication: Differentiation syndrome
     Dosage: UNK
     Route: 065
  54. TINZAPARIN [Concomitant]
     Active Substance: TINZAPARIN
     Indication: Product used for unknown indication
     Dosage: UNK
     Route: 065
  55. TINZAPARIN [Concomitant]
     Active Substance: TINZAPARIN
     Dosage: UNK
     Route: 065
  56. VESANOID [Concomitant]
     Active Substance: TRETINOIN
     Indication: Acute myeloid leukaemia
     Dosage: 100 MG, 1X/DAY
     Route: 048
     Dates: start: 20231106
  57. ZOLPIDEM [Concomitant]
     Active Substance: ZOLPIDEM TARTRATE
     Dosage: UNK
     Route: 048
     Dates: start: 20231023
  58. ZOLPIDEM [Concomitant]
     Active Substance: ZOLPIDEM TARTRATE
     Indication: Product used for unknown indication
     Dosage: UNK
     Route: 065
     Dates: start: 20231023

REACTIONS (3)
  - Acute kidney injury [Recovered/Resolved]
  - Diarrhoea [Recovering/Resolving]
  - Off label use [Unknown]

NARRATIVE: CASE EVENT DATE: 20231107
